FAERS Safety Report 25676839 (Version 5)
Quarter: 2025Q4

REPORT INFORMATION
  Report Type: Spontaneous
  Country: US (occurrence: US)
  Receive Date: 20250813
  Receipt Date: 20251205
  Transmission Date: 20260118
  Serious: Yes (Hospitalization, Other)
  Sender: CSL BEHRING
  Company Number: US-BEH-2025215570

PATIENT
  Age: 5 Year
  Sex: Male

DRUGS (9)
  1. IDELVION [Suspect]
     Active Substance: COAGULATION FACTOR IX RECOMBINANT HUMAN
     Indication: Factor IX deficiency
     Dosage: 2000 IU, BIW
     Route: 042
     Dates: start: 202505
  2. IDELVION [Suspect]
     Active Substance: COAGULATION FACTOR IX RECOMBINANT HUMAN
     Indication: Factor IX deficiency
     Dosage: 2000 IU, BIW
     Route: 042
     Dates: start: 202505
  3. IDELVION [Suspect]
     Active Substance: COAGULATION FACTOR IX RECOMBINANT HUMAN
     Dosage: 2000 IU, BIW
     Route: 042
     Dates: start: 202503
  4. IDELVION [Suspect]
     Active Substance: COAGULATION FACTOR IX RECOMBINANT HUMAN
     Dosage: 2000 IU, BIW
     Route: 042
     Dates: start: 202503
  5. IDELVION [Suspect]
     Active Substance: COAGULATION FACTOR IX RECOMBINANT HUMAN
     Dosage: 1000 IU, QW
     Route: 042
     Dates: start: 202503
  6. IDELVION [Suspect]
     Active Substance: COAGULATION FACTOR IX RECOMBINANT HUMAN
     Dosage: 1000 IU, QW
     Route: 042
     Dates: start: 202503
  7. HEPARIN [Concomitant]
     Active Substance: HEPARIN SODIUM
     Dosage: 3 ML
  8. SODIUM CHLORATE [Concomitant]
     Active Substance: SODIUM CHLORATE
     Dosage: 10 ML
  9. AMINOCAPROIC ACID [Concomitant]
     Active Substance: AMINOCAPROIC ACID

REACTIONS (5)
  - Haematemesis [Recovering/Resolving]
  - Haemarthrosis [Unknown]
  - Contusion [Unknown]
  - Epistaxis [Unknown]
  - Epistaxis [Unknown]

NARRATIVE: CASE EVENT DATE: 20250101
